FAERS Safety Report 25100816 (Version 3)
Quarter: 2025Q4

REPORT INFORMATION
  Report Type: Spontaneous
  Country: US (occurrence: US)
  Receive Date: 20250320
  Receipt Date: 20251015
  Transmission Date: 20260119
  Serious: No
  Sender: ROCHE
  Company Number: US-ROCHE-10000235585

PATIENT
  Age: 41 Year
  Sex: Male

DRUGS (3)
  1. HEMLIBRA [Suspect]
     Active Substance: EMICIZUMAB-KXWH
     Indication: Factor VIII deficiency
     Route: 058
     Dates: start: 201810
  2. HEMLIBRA [Suspect]
     Active Substance: EMICIZUMAB-KXWH
     Dosage: STRENGTH; 105MG/0.7ML ?STRENGTH; 60MG/0.4ML
     Route: 058
     Dates: start: 201810
  3. HEMLIBRA [Suspect]
     Active Substance: EMICIZUMAB-KXWH
     Dosage: STRENGTH: 105MG/.7ML AND 60MG/0.4ML
     Route: 058

REACTIONS (8)
  - Haemorrhage [Unknown]
  - Fall [Unknown]
  - Haemorrhage [Unknown]
  - Haemorrhage [Unknown]
  - Accident [Unknown]
  - Haemorrhage [Unknown]
  - Chest injury [Unknown]
  - Musculoskeletal chest pain [Unknown]

NARRATIVE: CASE EVENT DATE: 20250218
